FAERS Safety Report 21776203 (Version 2)
Quarter: 2023Q2

REPORT INFORMATION
  Report Type: Report from Study
  Country: US (occurrence: US)
  Receive Date: 20221226
  Receipt Date: 20230412
  Transmission Date: 20230722
  Serious: No
  Sender: FDA-Public Use
  Company Number: US-ABBVIE-4201789

PATIENT
  Sex: Female

DRUGS (3)
  1. RINVOQ [Suspect]
     Active Substance: UPADACITINIB
     Indication: Rheumatoid arthritis
     Route: 048
  2. MODERNA COVID-19 VACCINE [Concomitant]
     Active Substance: ELASOMERAN
     Indication: COVID-19 immunisation
     Dosage: FIRST DOSE, ONE IN ONCE
     Route: 030
     Dates: start: 20210201, end: 20210201
  3. MODERNA COVID-19 VACCINE [Concomitant]
     Active Substance: ELASOMERAN
     Indication: COVID-19 immunisation
     Dosage: SECOND DOSE, ONE IN ONCE
     Route: 030
     Dates: start: 20210301, end: 20210301

REACTIONS (7)
  - Migraine [Not Recovered/Not Resolved]
  - Acne [Recovering/Resolving]
  - Blister [Recovering/Resolving]
  - Dizziness [Recovering/Resolving]
  - Adverse drug reaction [Recovering/Resolving]
  - Pyrexia [Recovering/Resolving]
  - Weight increased [Not Recovered/Not Resolved]
